FAERS Safety Report 18315546 (Version 1)
Quarter: 2020Q3

REPORT INFORMATION
  Report Type: Spontaneous
  Country: US (occurrence: US)
  Receive Date: 20200926
  Receipt Date: 20200926
  Transmission Date: 20201103
  Serious: No
  Sender: FDA-Public Use
  Company Number: US-TEVA-2020-US-1833195

PATIENT
  Age: 79 Year
  Sex: Female
  Weight: 91.2 kg

DRUGS (5)
  1. WARFARIN [Concomitant]
     Active Substance: WARFARIN
  2. ADEMPAS [Concomitant]
     Active Substance: RIOCIGUAT
  3. OPSUMIT [Concomitant]
     Active Substance: MACITENTAN
  4. DILTIAZEM. [Concomitant]
     Active Substance: DILTIAZEM
  5. ALBUTEROL (SALBUTAMOL) [Suspect]
     Active Substance: ALBUTEROL
     Indication: DYSPNOEA
     Route: 065

REACTIONS (1)
  - Drug ineffective [Unknown]
